FAERS Safety Report 6012475-5 (Version None)
Quarter: 2008Q4

REPORT INFORMATION
  Report Type: 
  Country: None (occurrence: None)
  Receive Date: 20081218
  Receipt Date: 20081203
  Transmission Date: 20090506
  Serious: Yes (Other)
  Sender: FDA-Public Use
  Company Number: US-GENENTECH-273506

PATIENT

DRUGS (7)
  1. BEVACIZUMAB [Suspect]
     Indication: BREAST CANCER
     Dosage: 10 MG/KG, Q2W
     Route: 042
     Dates: start: 20060828
  2. CYCLOPHOSPHAMIDE [Suspect]
     Indication: BREAST CANCER
     Dosage: 400 MG/M2, Q2W
     Route: 042
     Dates: start: 20060828
  3. DOXORUBICIN HCL [Suspect]
     Indication: BREAST CANCER
     Dosage: 60 MG/M2, Q2W
     Route: 042
     Dates: start: 20060828
  4. NEUPOGEN [Concomitant]
     Indication: BREAST CANCER
     Dosage: 5 A?G/KG, UNK
     Route: 058
     Dates: start: 20060828
  5. PEGFILGRASTIM [Concomitant]
     Indication: BREAST CANCER
     Dosage: 6 MG, Q2W
     Route: 058
     Dates: start: 20060828
  6. PACLITAXEL [Suspect]
     Indication: BREAST CANCER
     Dosage: 175 MG/M2, Q2W
     Route: 042
  7. TAMOXIFEN [Concomitant]
     Indication: DRUG USE FOR UNKNOWN INDICATION

REACTIONS (1)
  - MENSTRUATION IRREGULAR [None]
